FAERS Safety Report 4548569-0 (Version None)
Quarter: 2004Q4

REPORT INFORMATION
  Report Type: 
  Country: None (occurrence: None)
  Receive Date: 20041227
  Receipt Date: 20040920
  Transmission Date: 20050328
  Serious: No
  Sender: FDA-Public Use
  Company Number: 04P-163-0273758-00

PATIENT
  Age: 67 Year
  Sex: Female
  Weight: 48.9885 kg

DRUGS (7)
  1. HUMIRA [Suspect]
     Indication: RHEUMATOID ARTHRITIS
     Dosage: 40 MG, 1 IN 2 WK, SUBCUTANEOUS
     Route: 058
     Dates: start: 20040714
  2. LEFLUNOMIDE [Concomitant]
  3. OXYCOCET [Concomitant]
  4. LOSARTAN POTASSIUM [Concomitant]
  5. LOTREL [Concomitant]
  6. CLOPIDOGREL BISULFATE [Concomitant]
  7. ATORVASTATIN [Concomitant]

REACTIONS (2)
  - FATIGUE [None]
  - NAUSEA [None]
